FAERS Safety Report 6562329-0 (Version None)
Quarter: 2010Q1

REPORT INFORMATION
  Report Type: 
  Country: None (occurrence: None)
  Receive Date: 20100130
  Receipt Date: 20091104
  Transmission Date: 20100710
  Serious: No
  Sender: FDA-Public Use
  Company Number: US-ABBOTT-09P-163-0607599-00

PATIENT
  Sex: Female
  Weight: 97.61 kg

DRUGS (10)
  1. HUMIRA [Suspect]
     Indication: RHEUMATOID ARTHRITIS
     Route: 058
     Dates: start: 20081101, end: 20090901
  2. METHOTREXATE [Concomitant]
     Indication: RHEUMATOID ARTHRITIS
     Dosage: 2.5MG
     Route: 048
  3. CELEBREX [Concomitant]
     Indication: RHEUMATOID ARTHRITIS
  4. SULFACELASTIN [Concomitant]
     Indication: DRUG USE FOR UNKNOWN INDICATION
  5. PREDNISONE [Concomitant]
     Indication: RHEUMATOID ARTHRITIS
  6. NORTRIPTYLINE HCL [Concomitant]
     Indication: DEPRESSION
  7. TETRACYCLINE [Concomitant]
     Indication: DRUG USE FOR UNKNOWN INDICATION
  8. HYDROXYCHLOROQUINE SULFATE [Concomitant]
     Indication: RHEUMATOID ARTHRITIS
  9. HYDROCHLOROTHIAZIDE [Concomitant]
     Indication: HYPERTENSION
  10. KLONOPIN [Concomitant]
     Indication: ANXIETY

REACTIONS (2)
  - ARTHRITIS [None]
  - DRUG INEFFECTIVE [None]
